FAERS Safety Report 7974734-6 (Version None)
Quarter: 2011Q4

REPORT INFORMATION
  Report Type: 
  Country: None (occurrence: None)
  Receive Date: 20111213
  Receipt Date: 20111209
  Transmission Date: 20120403
  Serious: No
  Sender: FDA-Public Use
  Company Number: US-TEVA-313058USA

PATIENT
  Sex: Female
  Weight: 60.836 kg

DRUGS (3)
  1. AZILECT [Suspect]
     Indication: PARKINSON'S DISEASE
     Dosage: 1 MILLIGRAM;
     Route: 048
  2. SAMI [Concomitant]
  3. PRAMIPEXOLE DIHYDROCHLORIDE [Concomitant]
     Indication: PARKINSON'S DISEASE

REACTIONS (3)
  - FEELING JITTERY [None]
  - NERVOUSNESS [None]
  - ACCIDENTAL OVERDOSE [None]
